FAERS Safety Report 6713004-0 (Version None)
Quarter: 2010Q2

REPORT INFORMATION
  Report Type: 
  Country: None (occurrence: None)
  Receive Date: 20100506
  Receipt Date: 20100426
  Transmission Date: 20101027
  Serious: Yes (Other)
  Sender: FDA-Public Use
  Company Number: CA-SANOFI-AVENTIS-2010SA024226

PATIENT
  Age: 70 Year
  Sex: Male

DRUGS (5)
  1. MULTAQ [Suspect]
     Indication: ATRIAL FIBRILLATION
     Route: 048
     Dates: start: 20091226
  2. ASPIRIN [Concomitant]
     Indication: DRUG USE FOR UNKNOWN INDICATION
     Route: 048
  3. TAMSULOSIN HYDROCHLORIDE [Concomitant]
     Indication: DRUG USE FOR UNKNOWN INDICATION
     Route: 048
  4. SYNTHROID [Concomitant]
     Indication: THYROID DISORDER
     Route: 048
  5. LESCOL [Concomitant]
     Indication: LIPID METABOLISM DISORDER
     Route: 048

REACTIONS (1)
  - ATRIAL FIBRILLATION [None]
